FAERS Safety Report 7770028-2 (Version None)
Quarter: 2011Q3

REPORT INFORMATION
  Report Type: 
  Country: None (occurrence: None)
  Receive Date: 20110920
  Receipt Date: 20110909
  Transmission Date: 20111222
  Serious: Yes (Death)
  Sender: FDA-Public Use
  Company Number: OMPQ-NO-1108S-0961

PATIENT
  Age: 62 Year
  Sex: Male

DRUGS (8)
  1. OMNIPAQUE 70 [Suspect]
     Indication: HEPATIC NEOPLASM
     Dosage: 143 ML, SINGLE DOSE, INTRAVENOUS
     Route: 042
     Dates: start: 20110824, end: 20110824
  2. ALDACTONE [Concomitant]
  3. FUROSEMIDE (LASIX) (FUROSEMIDE) [Concomitant]
  4. WARFARIN SODIUM [Concomitant]
  5. MONILAC (LACTULOSE) [Concomitant]
  6. ISOLEUCINE (LIVACT) (ISOLEUCINE) [Concomitant]
  7. OMEPRAZOLE (OMEPRAL) (OMEPRAZOLE) [Concomitant]
  8. INDERAL [Concomitant]

REACTIONS (6)
  - BLOOD PRESSURE DECREASED [None]
  - DISCOMFORT [None]
  - DYSPNOEA [None]
  - PULSELESS ELECTRICAL ACTIVITY [None]
  - FAECAL INCONTINENCE [None]
  - CARDIAC ARREST [None]
